FAERS Safety Report 7583878-2 (Version None)
Quarter: 2011Q2

REPORT INFORMATION
  Report Type: 
  Country: None (occurrence: None)
  Receive Date: 20110628
  Receipt Date: 20110628
  Transmission Date: 20111010
  Serious: Yes (Death)
  Sender: FDA-Public Use
  Company Number: None

PATIENT
  Age: 70 Year
  Sex: Female
  Weight: 74.8435 kg

DRUGS (2)
  1. ACETAMINOPHEN [Suspect]
     Indication: HEADACHE
     Dosage: 1 TABLET AS NEEDED PO
     Route: 048
     Dates: start: 20000101, end: 20100110
  2. ACETAMINOPHEN [Suspect]
     Indication: MYALGIA
     Dosage: 1 TABLET AS NEEDED PO
     Route: 048
     Dates: start: 20000101, end: 20100110

REACTIONS (5)
  - ABDOMINAL PAIN [None]
  - RENAL CANCER [None]
  - OESOPHAGEAL CARCINOMA [None]
  - PRODUCT QUALITY ISSUE [None]
  - LUNG NEOPLASM MALIGNANT [None]
